FAERS Safety Report 25037495 (Version 1)
Quarter: 2025Q1

REPORT INFORMATION
  Report Type: Report from Study
  Country: US (occurrence: US)
  Receive Date: 20250304
  Receipt Date: 20250304
  Transmission Date: 20250409
  Serious: Yes (Other)
  Sender: GLAXOSMITHKLINE
  Company Number: US-GLAXOSMITHKLINE INC-US2025023552

PATIENT

DRUGS (1)
  1. BELIMUMAB [Suspect]
     Active Substance: BELIMUMAB
     Indication: Systemic lupus erythematosus
     Dates: start: 202402

REACTIONS (3)
  - Systemic lupus erythematosus [Unknown]
  - Hip arthroplasty [Unknown]
  - Stress [Unknown]

NARRATIVE: CASE EVENT DATE: 20240806
